FAERS Safety Report 4874995-6 (Version None)
Quarter: 2006Q1

REPORT INFORMATION
  Report Type: 
  Country: None (occurrence: None)
  Receive Date: 20060104
  Receipt Date: 20051228
  Transmission Date: 20060701
  Serious: Yes (Hospitalization)
  Sender: FDA-Public Use
  Company Number: TAP2005Q02202

PATIENT
  Age: 77 Year
  Sex: Male

DRUGS (3)
  1. LUPRON DEPOT-4 [Suspect]
     Indication: PROSTATE CANCER
     Dosage: 30 MG, 1 IN 4 M, UNKNOWN
     Dates: start: 20050825
  2. CASODEX [Concomitant]
  3. FLOMAX (MORNIFLUMATE) [Concomitant]

REACTIONS (1)
  - METASTASES TO LYMPH NODES [None]
